FAERS Safety Report 5289185-5 (Version None)
Quarter: 2007Q1

REPORT INFORMATION
  Report Type: 
  Country: None (occurrence: None)
  Receive Date: 20070118
  Receipt Date: 20061115
  Transmission Date: 20070707
  Serious: Yes (Other)
  Sender: FDA-Public Use
  Company Number: HQWYE916117NOV06

PATIENT
  Age: 53 Year
  Sex: Female
  Weight: 127.12 kg

DRUGS (6)
  1. ADVIL PM [Suspect]
     Indication: BACK PAIN
     Dosage: 2 CAPLETS DAILY AT BEDTIME, ORAL
     Route: 048
     Dates: start: 20061113, end: 20061113
  2. ADVIL PM [Suspect]
     Indication: INSOMNIA
     Dosage: 2 CAPLETS DAILY AT BEDTIME, ORAL
     Route: 048
     Dates: start: 20061113, end: 20061113
  3. VERAPAMIL [Concomitant]
  4. ARIMIDEX ^ZENECA^ (ANASTROZOLE) [Concomitant]
  5. ADVAIR DISKUS 100/50 [Concomitant]
  6. MULTI-VITAMINS [Concomitant]

REACTIONS (1)
  - DRUG EFFECT DECREASED [None]
